FAERS Safety Report 9977465 (Version 1)
Quarter: 2014Q1

REPORT INFORMATION
  Report Type: Report from Study
  Country: US (occurrence: US)
  Receive Date: 20140306
  Receipt Date: 20140306
  Transmission Date: 20141002
  Serious: No
  Sender: FDA-Public Use
  Company Number: US-ABBVIE-13P-163-1162673-00

PATIENT
  Sex: Female
  Weight: 72.64 kg

DRUGS (11)
  1. HUMIRA [Suspect]
     Indication: PSORIASIS
     Route: 058
     Dates: start: 201112, end: 201303
  2. HUMIRA [Suspect]
     Route: 058
     Dates: start: 201309
  3. LEVOTHYROXINE [Concomitant]
     Indication: HYPOTHYROIDISM
  4. HCTZ [Concomitant]
     Indication: HYPERTENSION
  5. FOLIC ACID [Concomitant]
     Indication: PRODUCT USED FOR UNKNOWN INDICATION
  6. ENALAPRIL [Concomitant]
     Indication: HYPERTENSION
  7. PREDNISONE [Concomitant]
     Indication: PSORIASIS
  8. TRAMADOL [Concomitant]
     Indication: ARTHRALGIA
  9. IBUPROFEN [Concomitant]
     Indication: ARTHRALGIA
  10. BETAMETHASONE VALERATE [Concomitant]
     Indication: PSORIASIS
     Dosage: FOAM
  11. CLOBETASOL [Concomitant]
     Indication: PSORIASIS
     Route: 061

REACTIONS (1)
  - Arthralgia [Recovering/Resolving]
